FAERS Safety Report 6773329-X (Version None)
Quarter: 2010Q2

REPORT INFORMATION
  Report Type: 
  Country: None (occurrence: None)
  Receive Date: 20100611
  Receipt Date: 20100531
  Transmission Date: 20101027
  Serious: Yes (Other)
  Sender: FDA-Public Use
  Company Number: B0659490A

PATIENT
  Age: 52 Year
  Sex: Female

DRUGS (1)
  1. AMOXICILLIN TRIHYDRATE + POTASSIUM CLAVULANATE (AMOX.TRIHYD+POT.CLAVUL [Suspect]
     Indication: CELLULITIS

REACTIONS (2)
  - CHOLESTASIS [None]
  - HEPATITIS [None]
